FAERS Safety Report 20883097 (Version 1)
Quarter: 2022Q2

REPORT INFORMATION
  Report Type: Spontaneous
  Country: US (occurrence: US)
  Receive Date: 20220527
  Receipt Date: 20220527
  Transmission Date: 20220721
  Serious: No
  Sender: FDA-Public Use
  Company Number: US-PFIZER INC-202200725997

PATIENT
  Age: 80 Year
  Sex: Male
  Weight: 78.02 kg

DRUGS (3)
  1. PAXLOVID [Suspect]
     Active Substance: NIRMATRELVIR\RITONAVIR
     Indication: COVID-19 treatment
     Dosage: (150 MG NIRMATRELVIR + 100 MG RITONAVIR)
     Dates: start: 202205
  2. FLUTICASONE [Concomitant]
     Active Substance: FLUTICASONE
     Indication: Nasal congestion
     Dosage: 50 UG
     Route: 045
  3. FLUTICASONE [Concomitant]
     Active Substance: FLUTICASONE
     Indication: Nasal polyps

REACTIONS (1)
  - Insomnia [Unknown]
